FAERS Safety Report 8103113 (Version 3)
Quarter: 2013Q2

REPORT INFORMATION
  Report Type: Report from Study
  Country: DE (occurrence: DE)
  Receive Date: 20110824
  Receipt Date: 20130624
  Transmission Date: 20140414
  Serious: Yes (Death, Hospitalization)
  Sender: FDA-Public Use
  Company Number: DE-UCBSA-027040

PATIENT
  Sex: Male
  Weight: 70 kg

DRUGS (16)
  1. CIMZIA [Suspect]
     Indication: RHEUMATOID ARTHRITIS
     Dosage: 6 DOSES
     Route: 058
     Dates: start: 20100427, end: 20100525
  2. CIMZIA [Suspect]
     Indication: RHEUMATOID ARTHRITIS
     Dosage: 6 DOSES
     Route: 058
     Dates: start: 20100608, end: 20100817
  3. CIMZIA [Suspect]
     Indication: RHEUMATOID ARTHRITIS
     Dosage: 6 DOSES
     Route: 058
     Dates: start: 20100831, end: 20101109
  4. PREDNISOLON [Concomitant]
     Indication: RHEUMATOID ARTHRITIS
     Route: 048
     Dates: start: 20050315, end: 20101229
  5. FOSAMAX [Concomitant]
     Indication: OSTEOPOROSIS
     Route: 048
     Dates: start: 200412, end: 20101229
  6. CALCILAC KT [Concomitant]
     Indication: OSTEOPOROSIS
     Dosage: 1000 MG/ 800 IE ONCE DAILY
     Route: 048
     Dates: start: 200412, end: 20101229
  7. RAMIPRIL [Concomitant]
     Indication: HYPERTENSION
     Route: 048
     Dates: start: 2005, end: 20101229
  8. ASS [Concomitant]
     Indication: CORONARY ARTERY DISEASE
     Dosage: 100
     Dates: start: 1993
  9. ASS [Concomitant]
     Indication: CORONARY ARTERY DISEASE
     Route: 048
     Dates: start: 2004, end: 20101229
  10. INEGY 10/20 [Concomitant]
     Indication: HYPERCHOLESTEROLAEMIA
     Dosage: 10/20 MG ONCE DAILY
     Route: 048
     Dates: start: 20051108, end: 20101229
  11. CARVEDILOL [Concomitant]
     Indication: HYPERTENSION
     Route: 048
     Dates: start: 2005, end: 20101229
  12. PANTOZOL [Concomitant]
     Indication: GASTRIC DISORDER
     Route: 048
     Dates: start: 20051108, end: 20101229
  13. METHOREXATE [Concomitant]
  14. QUENSIL [Concomitant]
  15. LEFLUNOMIDE [Concomitant]
  16. SULFASALAZINE [Concomitant]

REACTIONS (1)
  - Diarrhoea haemorrhagic [Fatal]
